FAERS Safety Report 8766946 (Version 2)
Quarter: 2012Q4

REPORT INFORMATION
  Report Type: 
  Country: US (occurrence: US)
  Receive Date: 20120904
  Receipt Date: 20121001
  Transmission Date: 20130627
  Serious: Yes (Other)
  Sender: FDA-Public Use
  Company Number: US-JNJFOC-20120813905

PATIENT
  Age: 36 None
  Sex: Female

DRUGS (13)
  1. REMICADE [Suspect]
     Indication: CROHN^S DISEASE
     Route: 042
     Dates: start: 201208, end: 201208
  2. REMICADE [Suspect]
     Indication: CROHN^S DISEASE
     Dosage: on infliximab for one and half to two years
     Route: 042
  3. FOSAMAX [Concomitant]
     Indication: OSTEOPOROSIS
     Route: 065
  4. NECON [Concomitant]
     Indication: CONTRACEPTION
     Route: 065
  5. SIMVASTIN [Concomitant]
     Indication: DYSLIPIDAEMIA
     Route: 065
  6. PAROXETINE [Concomitant]
     Indication: DEPRESSION
     Route: 065
  7. LIALDA [Concomitant]
     Indication: CROHN^S DISEASE
     Route: 065
  8. DIPHENHYDRAMINE [Concomitant]
     Indication: PREMEDICATION
     Route: 042
  9. LORATADINE [Concomitant]
     Indication: PREMEDICATION
     Route: 065
  10. PREDNISONE [Concomitant]
     Indication: PREMEDICATION
     Route: 065
  11. ZYRTEC [Concomitant]
     Indication: PREMEDICATION
     Route: 065
  12. ZANTAC [Concomitant]
     Indication: PREMEDICATION
     Route: 065
  13. TYLENOL [Concomitant]
     Indication: PREMEDICATION
     Route: 065

REACTIONS (10)
  - Heart rate increased [Recovered/Resolved]
  - Dyspnoea [Unknown]
  - Flushing [Recovered/Resolved]
  - Infusion related reaction [Unknown]
  - Hypersensitivity [Recovered/Resolved]
  - Chest discomfort [Recovered/Resolved]
  - Hyperhidrosis [Recovered/Resolved]
  - Anxiety [Unknown]
  - Night sweats [Unknown]
  - Cough [Recovered/Resolved]
